FAERS Safety Report 5445206-8 (Version None)
Quarter: 2007Q3

REPORT INFORMATION
  Report Type: 
  Country: None (occurrence: None)
  Receive Date: 20070906
  Receipt Date: 20070822
  Transmission Date: 20080115
  Serious: Yes (Other)
  Sender: FDA-Public Use
  Company Number: TH-GENENTECH-222987

PATIENT
  Sex: Male

DRUGS (9)
  1. BEVACIZUMAB [Suspect]
     Indication: COLON CANCER
     Dosage: 250 MG, Q2W
     Route: 042
     Dates: start: 20050817, end: 20060130
  2. OXALIPLATIN [Suspect]
     Indication: COLON CANCER
     Dosage: 130 MG, Q2W
     Route: 042
     Dates: start: 20050817, end: 20051209
  3. FLUOROURACIL [Suspect]
     Indication: COLON CANCER
     Dosage: 1530 MG, Q2W
     Route: 042
     Dates: start: 20050817, end: 20051210
  4. LEUCOVORIN CALCIUM [Suspect]
     Indication: COLON CANCER
     Dosage: 306 MG, Q2W
     Route: 042
     Dates: start: 20050817, end: 20051210
  5. DOMPERIDONE [Concomitant]
     Indication: DRUG USE FOR UNKNOWN INDICATION
     Dates: start: 20060109, end: 20060212
  6. LORAZEPAM [Concomitant]
     Indication: DRUG USE FOR UNKNOWN INDICATION
     Dates: start: 20050819, end: 20050822
  7. SODIUM CHLORIDE [Concomitant]
     Indication: DRUG USE FOR UNKNOWN INDICATION
     Dates: start: 20060109, end: 20060227
  8. TERAZOSIN HCL [Concomitant]
     Indication: DRUG USE FOR UNKNOWN INDICATION
     Dates: start: 20050615
  9. CENTRUM [Concomitant]
     Indication: DRUG USE FOR UNKNOWN INDICATION
     Dates: start: 20050615

REACTIONS (3)
  - CARDIAC DISORDER [None]
  - MITRAL VALVE INCOMPETENCE [None]
  - PULMONARY HYPERTENSION [None]
